FAERS Safety Report 14081942 (Version 12)
Quarter: 2019Q3

REPORT INFORMATION
  Report Type: Report from Study
  Country: None (occurrence: US)
  Receive Date: 20171013
  Receipt Date: 20190912
  Transmission Date: 20191004
  Serious: Yes (Other)
  Sender: FDA-Public Use
  Company Number: US-ABBVIE-17K-163-1930121-00

PATIENT
  Age: 51 Year
  Sex: Female

DRUGS (2)
  1. HUMIRA [Suspect]
     Active Substance: ADALIMUMAB
     Indication: RHEUMATOID ARTHRITIS
     Route: 058
     Dates: start: 20161020, end: 2017
  2. HUMIRA [Suspect]
     Active Substance: ADALIMUMAB
     Route: 058
     Dates: start: 201712

REACTIONS (30)
  - Cartilage injury [Unknown]
  - Uveitis [Not Recovered/Not Resolved]
  - Oedema peripheral [Unknown]
  - Neck pain [Unknown]
  - Systemic lupus erythematosus [Unknown]
  - Amnesia [Recovered/Resolved]
  - Muscle spasms [Unknown]
  - Rheumatoid arthritis [Not Recovered/Not Resolved]
  - Feeling abnormal [Unknown]
  - Osteogenesis imperfecta [Recovering/Resolving]
  - Drug hypersensitivity [Unknown]
  - Swelling [Not Recovered/Not Resolved]
  - Pain in extremity [Unknown]
  - Memory impairment [Unknown]
  - Road traffic accident [Unknown]
  - Thrombosis [Recovered/Resolved]
  - Rheumatoid arthritis [Recovered/Resolved]
  - Foot fracture [Unknown]
  - Post procedural infection [Not Recovered/Not Resolved]
  - Cataract [Unknown]
  - Hypoaesthesia [Unknown]
  - Pain [Unknown]
  - Post procedural inflammation [Not Recovered/Not Resolved]
  - Eye pruritus [Not Recovered/Not Resolved]
  - Paraesthesia [Unknown]
  - Dyspnoea [Unknown]
  - Fatigue [Recovered/Resolved]
  - Vitamin B12 decreased [Unknown]
  - Gait disturbance [Unknown]
  - Sarcoidosis [Unknown]

NARRATIVE: CASE EVENT DATE: 20170328
